FAERS Safety Report 21239949 (Version 1)
Quarter: 2022Q3

REPORT INFORMATION
  Report Type: Spontaneous
  Country: US (occurrence: US)
  Receive Date: 20220822
  Receipt Date: 20220822
  Transmission Date: 20221027
  Serious: Yes (Death, Congenital Anomaly, Other)
  Sender: FDA-Public Use
  Company Number: US-NOVARTISPH-NVSC2022US186650

PATIENT

DRUGS (1)
  1. SACUBITRIL\VALSARTAN [Suspect]
     Active Substance: SACUBITRIL\VALSARTAN
     Indication: Foetal exposure during pregnancy
     Dosage: MATERNAL EXPOSURE DURING PREGNANCY: UNK
     Route: 064

REACTIONS (12)
  - Renal dysplasia [Fatal]
  - Hypocalvaria [Fatal]
  - Pulmonary hypoplasia [Fatal]
  - Death neonatal [Fatal]
  - Neonatal respiratory distress syndrome [Unknown]
  - Neonatal pneumothorax [Unknown]
  - Pulmonary hypertension [Unknown]
  - Renal impairment [Unknown]
  - Neonatal hypotension [Unknown]
  - Low birth weight baby [Unknown]
  - Oliguria [Unknown]
  - Foetal exposure during pregnancy [Unknown]
